FAERS Safety Report 8250828-5 (Version None)
Quarter: 2012Q2

REPORT INFORMATION
  Report Type: 
  Country: None (occurrence: None)
  Receive Date: 20120402
  Receipt Date: 20120329
  Transmission Date: 20120825
  Serious: Yes (Hospitalization, Other)
  Sender: FDA-Public Use
  Company Number: CA-PURDUE-CAN-2012-0002780

PATIENT
  Age: 19 Year
  Sex: Male

DRUGS (1)
  1. OXYCONTIN [Suspect]
     Indication: PRODUCT USED FOR UNKNOWN INDICATION
     Dosage: UNK
     Route: 065

REACTIONS (9)
  - DRUG ABUSE [None]
  - SOMNOLENCE [None]
  - DRUG DEPENDENCE [None]
  - JUDGEMENT IMPAIRED [None]
  - HOSPITALISATION [None]
  - AGGRESSION [None]
  - ANHEDONIA [None]
  - POISONING [None]
  - VOMITING [None]
